FAERS Safety Report 12517317 (Version 1)
Quarter: 2016Q2

REPORT INFORMATION
  Report Type: Report from Study
  Country: DE (occurrence: DE)
  Receive Date: 20160630
  Receipt Date: 20160630
  Transmission Date: 20160815
  Serious: Yes (Hospitalization)
  Sender: FDA-Public Use
  Company Number: DE-BIOGEN-2016BI00258239

PATIENT
  Age: 43 Year
  Sex: Female

DRUGS (2)
  1. TECFIDERA [Suspect]
     Active Substance: DIMETHYL FUMARATE
     Indication: MULTIPLE SCLEROSIS
     Route: 048
     Dates: start: 20140825
  2. NOVATHORAL [Concomitant]
     Indication: HYPOTHYROIDISM
     Route: 065
     Dates: start: 1990

REACTIONS (1)
  - Sudden hearing loss [Recovered/Resolved]

NARRATIVE: CASE EVENT DATE: 20160616
